FAERS Safety Report 9188550 (Version 2)
Quarter: 2013Q2

REPORT INFORMATION
  Report Type: Spontaneous
  Country: US (occurrence: US)
  Receive Date: 20130325
  Receipt Date: 20130613
  Transmission Date: 20140414
  Serious: Yes (Other)
  Sender: FDA-Public Use
  Company Number: US-PFIZER INC-2013096314

PATIENT
  Age: 79 Year
  Sex: Female

DRUGS (1)
  1. NORVASC [Suspect]
     Indication: HYPERTENSION
     Dosage: UNK

REACTIONS (3)
  - Atrial fibrillation [Unknown]
  - Urinary incontinence [Unknown]
  - Enuresis [Unknown]
